FAERS Safety Report 18480971 (Version 1)
Quarter: 2020Q4

REPORT INFORMATION
  Report Type: Spontaneous
  Country: US (occurrence: US)
  Receive Date: 20201109
  Receipt Date: 20201109
  Transmission Date: 20210114
  Serious: No
  Sender: FDA-Public Use
  Company Number: US-ELI_LILLY_AND_COMPANY-US202011003063

PATIENT
  Sex: Female
  Weight: 62.59 kg

DRUGS (4)
  1. TADALAFIL. [Suspect]
     Active Substance: TADALAFIL
     Indication: PULMONARY ARTERIAL HYPERTENSION
     Dosage: UNK UNK, UNKNOWN
     Route: 065
  2. LETAIRIS [Concomitant]
     Active Substance: AMBRISENTAN
     Indication: PRODUCT USED FOR UNKNOWN INDICATION
  3. REMODULIN [Suspect]
     Active Substance: TREPROSTINIL
     Indication: PULMONARY ARTERIAL HYPERTENSION
     Dosage: 72 NG/KG/MIN
     Route: 058
     Dates: start: 20190523
  4. AMLODIPINE [Concomitant]
     Active Substance: AMLODIPINE BESYLATE
     Indication: PRODUCT USED FOR UNKNOWN INDICATION

REACTIONS (6)
  - Hypertension [Unknown]
  - Diarrhoea [Unknown]
  - Off label use [Unknown]
  - Malaise [Unknown]
  - Abdominal infection [Unknown]
  - Helicobacter infection [Unknown]
